FAERS Safety Report 5850717-7 (Version None)
Quarter: 2008Q3

REPORT INFORMATION
  Report Type: 
  Country: None (occurrence: None)
  Receive Date: 20080818
  Receipt Date: 20080814
  Transmission Date: 20090109
  Serious: Yes (Death)
  Sender: FDA-Public Use
  Company Number: 2008SP016469

PATIENT
  Age: 47 Year
  Sex: Female

DRUGS (2)
  1. PEG-INTRON [Suspect]
     Indication: MALIGNANT MELANOMA
  2. SORAFENIB (SORAFENIB) [Suspect]
     Indication: MALIGNANT MELANOMA

REACTIONS (1)
  - DEATH [None]
